FAERS Safety Report 5919350-2 (Version None)
Quarter: 2008Q4

REPORT INFORMATION
  Report Type: 
  Country: None (occurrence: None)
  Receive Date: 20081015
  Receipt Date: 20081010
  Transmission Date: 20090506
  Serious: Yes (Hospitalization)
  Sender: FDA-Public Use
  Company Number: A0751338A

PATIENT
  Age: 17 Year
  Sex: Male

DRUGS (7)
  1. LAMICTAL [Suspect]
     Indication: DRUG USE FOR UNKNOWN INDICATION
     Dosage: 200MG TWICE PER DAY
     Route: 048
  2. GLYCOPYRROLATE [Concomitant]
  3. LITHIUM [Concomitant]
  4. ROZEREM [Concomitant]
  5. GEODON [Concomitant]
  6. DIAZEPAM [Concomitant]
  7. TYLENOL (CAPLET) [Concomitant]

REACTIONS (4)
  - BIPOLAR DISORDER [None]
  - CONVULSION [None]
  - DRUG INEFFECTIVE [None]
  - PSYCHOTIC DISORDER [None]
